FAERS Safety Report 8391928-9 (Version None)
Quarter: 2012Q2

REPORT INFORMATION
  Report Type: 
  Country: None (occurrence: None)
  Receive Date: 20120529
  Receipt Date: 20120515
  Transmission Date: 20120825
  Serious: Yes (Other)
  Sender: FDA-Public Use
  Company Number: FR-VIIV HEALTHCARE LIMITED-B0801412A

PATIENT
  Sex: Male

DRUGS (3)
  1. ABACAVIR SULFATE/LAMIVUDINE [Suspect]
     Indication: HIV INFECTION CDC CATEGORY A1
     Route: 048
     Dates: start: 20110601
  2. ISENTRESS [Suspect]
     Indication: HIV INFECTION CDC CATEGORY A1
     Route: 048
     Dates: start: 20110601
  3. EXFORGE [Concomitant]
     Indication: ESSENTIAL HYPERTENSION
     Route: 048

REACTIONS (1)
  - DEPRESSION [None]
